FAERS Safety Report 18129026 (Version 1)
Quarter: 2020Q3

REPORT INFORMATION
  Report Type: Spontaneous
  Country: US (occurrence: US)
  Receive Date: 20200808
  Receipt Date: 20200808
  Transmission Date: 20201103
  Serious: Yes (Other)
  Sender: FDA-Public Use
  Company Number: None

PATIENT
  Age: 35 Year
  Sex: Female
  Weight: 105.3 kg

DRUGS (7)
  1. SIMVASTATIN. [Concomitant]
     Active Substance: SIMVASTATIN
  2. LATUDA [Suspect]
     Active Substance: LURASIDONE HYDROCHLORIDE
     Indication: BIPOLAR DISORDER
     Dosage: ?          QUANTITY:1 TABLET(S);?
     Route: 048
     Dates: start: 20200725
  3. PRONTONIX 40MG [Concomitant]
  4. KLONOPIN [Concomitant]
     Active Substance: CLONAZEPAM
  5. TYLENOL W/CODEINE PRN [Concomitant]
  6. DEPOKOTE 500MG [Concomitant]
  7. CAMILA 0.35MG (BIRTH CONTROL) [Concomitant]

REACTIONS (6)
  - Restlessness [None]
  - Malaise [None]
  - Abdominal pain upper [None]
  - Vomiting [None]
  - Dyspepsia [None]
  - Feeling hot [None]

NARRATIVE: CASE EVENT DATE: 20200803
